FAERS Safety Report 4597800-4 (Version None)
Quarter: 2005Q1

REPORT INFORMATION
  Report Type: 
  Country: None (occurrence: None)
  Receive Date: 20050301
  Receipt Date: 20050223
  Transmission Date: 20050727
  Serious: Yes (Life-Threatening, Hospitalization)
  Sender: FDA-Public Use
  Company Number: 2005AC00333

PATIENT
  Age: 39 Year
  Sex: Female

DRUGS (3)
  1. XYLOCAINE [Suspect]
     Indication: LOCAL ANAESTHESIA
     Dosage: 5 ML ONCE IJ
     Dates: start: 20041112, end: 20041112
  2. KENACORT [Suspect]
     Dosage: 2 ML ONCE IJ
     Dates: start: 20041112, end: 20041112
  3. METOPROLOL TARTRAS [Concomitant]

REACTIONS (5)
  - ANAESTHETIC COMPLICATION [None]
  - ANAPHYLACTIC REACTION [None]
  - CIRCULATORY COLLAPSE [None]
  - DRUG INTERACTION [None]
  - LOSS OF CONSCIOUSNESS [None]
